FAERS Safety Report 4998456-9 (Version None)
Quarter: 2006Q2

REPORT INFORMATION
  Report Type: 
  Country: None (occurrence: None)
  Receive Date: 20060510
  Receipt Date: 20060428
  Transmission Date: 20061013
  Serious: Yes (Life-Threatening, Hospitalization)
  Sender: FDA-Public Use
  Company Number: JP-JPN-A200601447

PATIENT
  Age: 67 Year
  Sex: Male

DRUGS (5)
  1. PAXIL [Suspect]
     Indication: ANXIETY
     Dosage: 10MG TWICE PER DAY
     Route: 048
     Dates: start: 20060303, end: 20060330
  2. HYPEN [Concomitant]
     Dosage: 200MG TWICE PER DAY
     Route: 048
  3. CERCINE [Concomitant]
     Dosage: 5MG PER DAY
     Route: 048
  4. MUCOSTA [Concomitant]
     Dosage: 100MG TWICE PER DAY
     Route: 048
  5. LENDORMIN [Concomitant]
     Route: 048

REACTIONS (2)
  - BLOOD LACTATE DEHYDROGENASE INCREASED [None]
  - INTERSTITIAL LUNG DISEASE [None]
